FAERS Safety Report 6549137-1 (Version None)
Quarter: 2010Q1

REPORT INFORMATION
  Report Type: 
  Country: None (occurrence: None)
  Receive Date: 20100125
  Receipt Date: 20100114
  Transmission Date: 20100710
  Serious: Yes (Other)
  Sender: FDA-Public Use
  Company Number: NL-BAXTER-2009BH017774

PATIENT
  Age: 75 Year
  Sex: Female

DRUGS (4)
  1. GAMMAGARD LIQUID [Suspect]
     Indication: DRUG USE FOR UNKNOWN INDICATION
     Route: 042
     Dates: start: 20091110, end: 20091110
  2. GAMMAGARD LIQUID [Suspect]
     Route: 042
     Dates: start: 20070130, end: 20091109
  3. GAMMAGARD LIQUID [Suspect]
     Route: 042
     Dates: start: 20070130, end: 20091109
  4. SODIUM CHLORIDE 0.9% IN PLASTIC CONTAINER [Suspect]
     Indication: DRUG USE FOR UNKNOWN INDICATION
     Route: 065
     Dates: start: 20091110, end: 20091110

REACTIONS (1)
  - HERPES ZOSTER [None]
